FAERS Safety Report 23777629 (Version 8)
Quarter: 2024Q3

REPORT INFORMATION
  Report Type: Spontaneous
  Country: US (occurrence: US)
  Receive Date: 20240424
  Receipt Date: 20240910
  Transmission Date: 20241016
  Serious: Yes (Other)
  Sender: PFIZER
  Company Number: US-PFIZER INC-202400089227

PATIENT
  Age: 15 Year
  Sex: Male
  Weight: 63.5 kg

DRUGS (2)
  1. GENOTROPIN [Suspect]
     Active Substance: SOMATROPIN
     Indication: Growth hormone deficiency
     Dosage: 1.8 MG, DAILY (1.8MG ONCE A NIGHT, GUESSES IT IS MG OR ML)
     Route: 058
     Dates: start: 202404
  2. OMNITROPE [Concomitant]
     Active Substance: SOMATROPIN
     Dosage: UNK

REACTIONS (9)
  - Drug dose omission by device [Unknown]
  - Accidental overdose [Unknown]
  - Product preparation issue [Unknown]
  - Product preparation issue [Unknown]
  - Underdose [Unknown]
  - Device leakage [Unknown]
  - Device deployment issue [Unknown]
  - Device breakage [Unknown]
  - Device use error [Unknown]
